FAERS Safety Report 23755676 (Version 2)
Quarter: 2025Q3

REPORT INFORMATION
  Report Type: Spontaneous
  Country: US (occurrence: US)
  Receive Date: 20240418
  Receipt Date: 20250819
  Transmission Date: 20251021
  Serious: Yes (Life-Threatening, Hospitalization, Other)
  Sender: AUROBINDO
  Company Number: US-MLMSERVICE-20240328-4919163-1

PATIENT
  Age: 68 Year
  Sex: Female

DRUGS (1)
  1. FLECAINIDE [Suspect]
     Active Substance: FLECAINIDE
     Indication: Product used for unknown indication
     Route: 065

REACTIONS (8)
  - Atrioventricular block first degree [Recovering/Resolving]
  - Sinus bradycardia [Recovering/Resolving]
  - Tachycardia [Recovering/Resolving]
  - Ventricular tachycardia [Recovering/Resolving]
  - Toxicity to various agents [Unknown]
  - Palpitations [Recovering/Resolving]
  - Dizziness [Recovering/Resolving]
  - Dyspnoea [Recovering/Resolving]
